FAERS Safety Report 25636861 (Version 1)
Quarter: 2025Q3

REPORT INFORMATION
  Report Type: Spontaneous
  Country: CN (occurrence: CN)
  Receive Date: 20250804
  Receipt Date: 20250804
  Transmission Date: 20251020
  Serious: Yes (Other)
  Sender: BRISTOL-MYERS SQUIBB COMPANY
  Company Number: CN-BRISTOL-MYERS SQUIBB COMPANY-2025-105579

PATIENT
  Age: 49 Year
  Sex: Female

DRUGS (5)
  1. DASATINIB [Interacting]
     Active Substance: DASATINIB
     Indication: Philadelphia positive acute lymphocytic leukaemia
     Dates: start: 20210114
  2. DASATINIB [Interacting]
     Active Substance: DASATINIB
  3. DASATINIB [Interacting]
     Active Substance: DASATINIB
  4. VORICONAZOLE [Interacting]
     Active Substance: VORICONAZOLE
     Indication: Bronchopulmonary aspergillosis
     Dosage: 400MG
     Route: 042
     Dates: start: 20210818
  5. VORICONAZOLE [Interacting]
     Active Substance: VORICONAZOLE
     Dosage: 200MG
     Route: 042
     Dates: end: 20220621

REACTIONS (4)
  - Pulmonary hypertension [Recovered/Resolved]
  - Bronchopulmonary aspergillosis [Unknown]
  - Labelled drug-drug interaction issue [Unknown]
  - Pleural effusion [Unknown]
